FAERS Safety Report 5650479-2 (Version None)
Quarter: 2008Q1

REPORT INFORMATION
  Report Type: 
  Country: None (occurrence: None)
  Receive Date: 20080305
  Receipt Date: 20080225
  Transmission Date: 20080703
  Serious: Yes (Hospitalization, Other)
  Sender: FDA-Public Use
  Company Number: US-JNJFOC-20080205840

PATIENT
  Sex: Female
  Weight: 81.65 kg

DRUGS (7)
  1. REMICADE [Suspect]
     Route: 042
  2. REMICADE [Suspect]
     Indication: COLITIS ULCERATIVE
     Route: 042
  3. COLAZAL [Concomitant]
     Route: 048
  4. PREDNISONE TAB [Concomitant]
     Route: 048
  5. LEVSIN [Concomitant]
     Route: 060
  6. ROBINUL [Concomitant]
  7. PREDNISONE TAB [Concomitant]
     Indication: PREMEDICATION

REACTIONS (7)
  - CHEST PAIN [None]
  - DYSPNOEA [None]
  - HEART RATE INCREASED [None]
  - HEPATIC CIRRHOSIS [None]
  - HYPERTENSION [None]
  - PAIN [None]
  - RASH [None]
